FAERS Safety Report 6106932-0 (Version None)
Quarter: 2009Q1

REPORT INFORMATION
  Report Type: 
  Country: None (occurrence: None)
  Receive Date: 20090309
  Receipt Date: 20090301
  Transmission Date: 20090719
  Serious: Yes (Life-Threatening, Hospitalization)
  Sender: FDA-Public Use
  Company Number: DE-RANBAXY-2009RR-22284

PATIENT
  Age: 82 Year
  Sex: Female

DRUGS (12)
  1. ASPIRIN [Suspect]
     Indication: MYOCARDIAL INFARCTION
     Dosage: 100 MG, QD
     Route: 048
     Dates: start: 20071101
  2. CLOPIDOGREL [Suspect]
     Indication: MYOCARDIAL INFARCTION
     Dosage: 75 MG, QD
     Route: 048
     Dates: start: 20071101, end: 20080328
  3. FALITHROM [Suspect]
     Indication: ATRIAL FIBRILLATION
     Dosage: 1 DF, UNK
     Route: 048
     Dates: end: 20080328
  4. SIMVASTATIN [Suspect]
     Indication: HYPERLIPIDAEMIA
     Dosage: 20 MG, QD
     Route: 048
     Dates: start: 20070101
  5. BISOPROLOL [Concomitant]
     Indication: CORONARY ARTERY DISEASE
     Dosage: 2.5 MG, BID
     Route: 048
     Dates: start: 20070101
  6. PANTOZOL [Concomitant]
     Indication: PROPHYLAXIS AGAINST GASTROINTESTINAL ULCER
     Dosage: 20 MG, QD
     Route: 048
     Dates: start: 20071101
  7. PANTOZOL [Concomitant]
     Dosage: 40 MG, UNK
     Dates: start: 20080328, end: 20080329
  8. PANTOZOL [Concomitant]
     Dosage: 80 MG, UNK
     Dates: start: 20080331
  9. PANTOZOL [Concomitant]
     Dosage: 80 MG, UNK
     Dates: start: 20080401
  10. RAMIPRIL [Concomitant]
     Indication: HYPERTENSION
     Dosage: 2.5 MG, QD
     Route: 048
  11. TOREM [Concomitant]
     Indication: HYPERTENSION
     Dosage: 10 MG, QD
     Route: 048
  12. KONOAKION [Concomitant]
     Dosage: 10 MG, UNK
     Dates: start: 20080328

REACTIONS (1)
  - GASTROINTESTINAL HAEMORRHAGE [None]
